FAERS Safety Report 11020591 (Version 1)
Quarter: 2015Q2

REPORT INFORMATION
  Report Type: Spontaneous
  Country: US (occurrence: US)
  Receive Date: 20150413
  Receipt Date: 20150413
  Transmission Date: 20150821
  Serious: No
  Sender: FDA-Public Use
  Company Number: US-ASTRAZENECA-2015SE31506

PATIENT
  Age: 69 Year
  Sex: Female
  Weight: 81.6 kg

DRUGS (11)
  1. CLONAZEPAM. [Concomitant]
     Active Substance: CLONAZEPAM
  2. L-THYROXINE [Concomitant]
     Active Substance: LEVOTHYROXINE
  3. MAGNESIUM FIZZ PLUS [Concomitant]
  4. EVISTA [Concomitant]
     Active Substance: RALOXIFENE HYDROCHLORIDE
  5. MYRBETRIQ [Concomitant]
     Active Substance: MIRABEGRON
  6. MULTIVITAMIN [Concomitant]
     Active Substance: VITAMINS
  7. TRIAMTERENE AND HYDROCHLOROTHIAZIDE [Concomitant]
     Active Substance: HYDROCHLOROTHIAZIDE\TRIAMTERENE
  8. CRESTOR [Suspect]
     Active Substance: ROSUVASTATIN CALCIUM
     Route: 048
  9. LYRICA [Concomitant]
     Active Substance: PREGABALIN
  10. ACEBUTOLOL [Concomitant]
     Active Substance: ACEBUTOLOL
  11. AMITRIPTYLINE [Concomitant]
     Active Substance: AMITRIPTYLINE

REACTIONS (2)
  - Gait disturbance [Recovering/Resolving]
  - Musculoskeletal pain [Recovering/Resolving]

NARRATIVE: CASE EVENT DATE: 20141027
